FAERS Safety Report 7319265-1 (Version None)
Quarter: 2011Q1

REPORT INFORMATION
  Report Type: 
  Country: None (occurrence: None)
  Receive Date: 20110214
  Receipt Date: 20110126
  Transmission Date: 20110831
  Serious: Yes (Hospitalization, Other)
  Sender: FDA-Public Use
  Company Number: TPA2011A00381

PATIENT
  Age: 78 Year
  Sex: Male

DRUGS (19)
  1. FINASTERIDE [Concomitant]
  2. NEURONTIN [Concomitant]
  3. DIGOXIN [Concomitant]
  4. DOCUSATE SODIUM (DOCUSATE SODIUM) [Concomitant]
  5. FLOMAX [Concomitant]
  6. SINGULAIR [Concomitant]
  7. DEXILANT [Suspect]
  8. DARVOCET N 100 (PARACETAMOL, DEXTROPROPOXYOPHENE NAPSILATE) [Concomitant]
  9. LISINOPRIL [Concomitant]
  10. METOPROLOL (METOPROLOL) [Concomitant]
  11. SIMVASTATIN [Concomitant]
  12. DEXILANT [Suspect]
     Dosage: 60 MG, 1 IN 1 D, PER ORAL, 60 MG, 1 IN 1 D, PER ORAL; 60 MG, 1 IN 1 D, PER ORAL; 60 MG, 1 IN 1 D, PE
     Route: 048
     Dates: start: 20100930
  13. DEXILANT [Suspect]
     Dosage: 60 MG, 1 IN 1 D, PER ORAL, 60 MG, 1 IN 1 D, PER ORAL; 60 MG, 1 IN 1 D, PER ORAL; 60 MG, 1 IN 1 D, PE
     Route: 048
     Dates: end: 20110125
  14. DEXILANT [Suspect]
     Dosage: 60 MG, 1 IN 1 D, PER ORAL, 60 MG, 1 IN 1 D, PER ORAL; 60 MG, 1 IN 1 D, PER ORAL; 60 MG, 1 IN 1 D, PE
     Route: 048
     Dates: start: 20110126
  15. DEXILANT [Suspect]
     Dosage: 60 MG, 1 IN 1 D, PER ORAL, 60 MG, 1 IN 1 D, PER ORAL; 60 MG, 1 IN 1 D, PER ORAL; 60 MG, 1 IN 1 D, PE
     Route: 048
     Dates: start: 20100603, end: 20100101
  16. LASIX [Concomitant]
  17. WARFARIN (WARFARIN) [Concomitant]
  18. SIMETHICONE (SIMETHICONE) [Concomitant]
  19. FLOVENT [Concomitant]

REACTIONS (1)
  - INFECTION [None]
